FAERS Safety Report 8767265 (Version 2)
Quarter: 2012Q4

REPORT INFORMATION
  Report Type: 
  Country: ES (occurrence: ES)
  Receive Date: 20120904
  Receipt Date: 20120914
  Transmission Date: 20130627
  Serious: Yes (Life-Threatening)
  Sender: FDA-Public Use
  Company Number: ES-US-EMD SERONO, INC.-7157492

PATIENT
  Age: 33 Year
  Sex: Female

DRUGS (3)
  1. INTERFERON BETA-1A [Suspect]
     Indication: MULTIPLE SCLEROSIS
  2. IBUPROFEN [Suspect]
     Indication: INFLUENZA LIKE ILLNESS
  3. DEFLAZACORT [Suspect]
     Indication: INFLUENZA LIKE ILLNESS

REACTIONS (2)
  - Toxic epidermal necrolysis [Recovered/Resolved]
  - Influenza like illness [Unknown]
